FAERS Safety Report 9991484 (Version 1)
Quarter: 2014Q1

REPORT INFORMATION
  Report Type: Report from Study
  Country: US (occurrence: US)
  Receive Date: 20140310
  Receipt Date: 20140310
  Transmission Date: 20141002
  Serious: No
  Sender: FDA-Public Use
  Company Number: US-ABBVIE-13P-163-1136507-00

PATIENT
  Age: 25 Year
  Sex: Female

DRUGS (9)
  1. HUMIRA [Suspect]
     Indication: CROHN^S DISEASE
     Dates: start: 20130409, end: 20130514
  2. HUMIRA [Suspect]
     Dates: start: 20130517, end: 201308
  3. HUMIRA [Suspect]
     Dates: start: 20130820
  4. CALCIUM [Concomitant]
     Indication: PRODUCT USED FOR UNKNOWN INDICATION
  5. VITAMIN D [Concomitant]
  6. FISH OIL [Concomitant]
     Indication: PRODUCT USED FOR UNKNOWN INDICATION
  7. FLUOXETINE [Concomitant]
     Indication: BULIMIA NERVOSA
  8. ADDERALL [Concomitant]
     Indication: ATTENTION DEFICIT/HYPERACTIVITY DISORDER
  9. NOVOLOG [Concomitant]
     Indication: TYPE 1 DIABETES MELLITUS
     Dosage: 0.05UNITS/HOUR EVERY 1 HOUR, THEN 1 UNIT FOR EVERY 30 CARBS WHEN EATING

REACTIONS (3)
  - Gastroenteritis viral [Recovered/Resolved]
  - Abdominal pain upper [Recovered/Resolved]
  - Sinus disorder [Recovered/Resolved]
